FAERS Safety Report 7341020-7 (Version None)
Quarter: 2011Q1

REPORT INFORMATION
  Report Type: 
  Country: None (occurrence: None)
  Receive Date: 20110309
  Receipt Date: 20110228
  Transmission Date: 20110831
  Serious: Yes (Hospitalization)
  Sender: FDA-Public Use
  Company Number: DE-TEVA-269532GER

PATIENT
  Age: 41 Year
  Sex: Female

DRUGS (5)
  1. ZIPRASIDONE [Suspect]
  2. AMITRIPTYLINE [Suspect]
  3. AMITRIPTYLINE [Suspect]
  4. ZIPRASIDONE [Suspect]
  5. AMITRIPTYLINE [Suspect]

REACTIONS (4)
  - ATRIOVENTRICULAR BLOCK FIRST DEGREE [None]
  - ELECTROCARDIOGRAM QT PROLONGED [None]
  - ELECTROCARDIOGRAM T WAVE INVERSION [None]
  - BUNDLE BRANCH BLOCK LEFT [None]
